FAERS Safety Report 9779221 (Version 2)
Quarter: 2014Q1

REPORT INFORMATION
  Report Type: Spontaneous
  Country: US (occurrence: US)
  Receive Date: 20131223
  Receipt Date: 20140320
  Transmission Date: 20141002
  Serious: No
  Sender: FDA-Public Use
  Company Number: US-ENDO PHARMACEUTICALS INC.-OPCR20130401

PATIENT
  Age: 47 Year
  Sex: Female
  Weight: 79 kg

DRUGS (8)
  1. OPANA ER 40MG [Suspect]
     Indication: PAIN
     Route: 048
  2. TUSSIONEX [Suspect]
     Indication: COUGH
     Dosage: UNK
     Dates: end: 201310
  3. METFORMIN HYDROCHLORIDE TABLETS [Concomitant]
     Indication: DIABETES MELLITUS
     Dosage: UNK
  4. LISINOPRIL TABLETS [Concomitant]
     Indication: HYPERTENSION
     Dosage: UNK
  5. SIMVASTATIN [Concomitant]
     Indication: BLOOD CHOLESTEROL INCREASED
     Dosage: UNK
  6. PROTONIX [Concomitant]
     Indication: HIATUS HERNIA
     Dosage: UNK
  7. HYDROCODONE/ACETAMINOPHEN [Concomitant]
     Indication: BREAKTHROUGH PAIN
     Dosage: 10/325 MG
     Route: 048
  8. OPANA ER 40MG [Concomitant]
     Indication: PAIN
     Route: 048
     Dates: start: 2008

REACTIONS (2)
  - False positive investigation result [Recovered/Resolved]
  - Drug effect decreased [Not Recovered/Not Resolved]
